FAERS Safety Report 7870488-2 (Version None)
Quarter: 2011Q4

REPORT INFORMATION
  Report Type: 
  Country: None (occurrence: None)
  Receive Date: 20111029
  Receipt Date: 20110216
  Transmission Date: 20120403
  Serious: No
  Sender: FDA-Public Use
  Company Number: US-AMGEN-USASP2011009220

PATIENT
  Age: 49 Year
  Sex: Female

DRUGS (1)
  1. ENBREL [Suspect]
     Indication: RHEUMATOID ARTHRITIS
     Dosage: 50 MG, QWK
     Dates: start: 20110111

REACTIONS (11)
  - NAUSEA [None]
  - DIARRHOEA [None]
  - INJECTION SITE HAEMATOMA [None]
  - SINUSITIS [None]
  - INJECTION SITE SWELLING [None]
  - VOMITING [None]
  - DIZZINESS [None]
  - WEIGHT DECREASED [None]
  - INJECTION SITE ERYTHEMA [None]
  - MUSCLE SPASMS [None]
  - HEADACHE [None]
